FAERS Safety Report 4263385-5 (Version None)
Quarter: 2004Q1

REPORT INFORMATION
  Report Type: 
  Country: None (occurrence: None)
  Receive Date: 20040104
  Receipt Date: 20040104
  Transmission Date: 20041129
  Serious: Yes (Hospitalization)
  Sender: FDA-Public Use
  Company Number: None

PATIENT
  Sex: Female
  Weight: 61 kg

DRUGS (8)
  1. TAXOTERE [Suspect]
     Indication: BREAST CANCER
     Dosage: 57 MG Q WEEK INTRAVENOUS
     Route: 042
     Dates: start: 20031203, end: 20031216
  2. HIRUDIN [Suspect]
     Indication: BREAST CANCER
     Dosage: 18 MG Q 12 HOURS SQ
     Route: 058
     Dates: start: 20031012, end: 20031219
  3. HYDROCHLOROTHIAZIDE [Concomitant]
  4. OXYCONTIN [Concomitant]
  5. OXYCODONE HCL [Concomitant]
  6. CELEXA [Concomitant]
  7. TOPROL-XL [Concomitant]
  8. CLONAZEPAM [Concomitant]

REACTIONS (4)
  - DYSPNOEA [None]
  - FEBRILE NEUTROPENIA [None]
  - PRODUCTIVE COUGH [None]
  - PYREXIA [None]
